FAERS Safety Report 17512175 (Version 6)
Quarter: 2020Q3

REPORT INFORMATION
  Report Type: Spontaneous
  Country: US (occurrence: US)
  Receive Date: 20200306
  Receipt Date: 20200821
  Transmission Date: 20201102
  Serious: Yes (Other)
  Sender: FDA-Public Use
  Company Number: US-009507513-2003USA002385

PATIENT
  Sex: Female
  Weight: 61.68 kg

DRUGS (3)
  1. NEXPLANON [Suspect]
     Active Substance: ETONOGESTREL
     Indication: CONTRACEPTION
     Dosage: FIRST SUBDERMAL CONTRACEPTIVE IMPLANT
     Route: 059
     Dates: start: 20140303, end: 20161205
  2. NEXPLANON [Suspect]
     Active Substance: ETONOGESTREL
     Dosage: IMPLANT, NON?DOMINANT LEFT ARM
     Route: 059
     Dates: start: 20161205, end: 20200529
  3. SINGULAIR [Concomitant]
     Active Substance: MONTELUKAST SODIUM
     Dosage: UNK
     Route: 048

REACTIONS (14)
  - Surgery [Recovered/Resolved]
  - Paraesthesia [Unknown]
  - Menstrual disorder [Unknown]
  - Surgery [Recovered/Resolved]
  - Complication of device removal [Recovered/Resolved]
  - Complication of device removal [Recovered/Resolved]
  - Rhinoplasty [Unknown]
  - Hypoaesthesia [Unknown]
  - Menorrhagia [Recovered/Resolved]
  - Complication associated with device [Recovered/Resolved]
  - Device dislocation [Recovered/Resolved]
  - Scar [Unknown]
  - Incorrect product administration duration [Unknown]
  - Complication associated with device [Recovered/Resolved]

NARRATIVE: CASE EVENT DATE: 20140303
